FAERS Safety Report 6648961-4 (Version None)
Quarter: 2010Q1

REPORT INFORMATION
  Report Type: 
  Country: None (occurrence: None)
  Receive Date: 20100324
  Receipt Date: 20100319
  Transmission Date: 20100710
  Serious: Yes (Other)
  Sender: FDA-Public Use
  Company Number: GB-MERCK-1003GBR00100

PATIENT
  Age: 46 Year
  Sex: Male
  Weight: 76 kg

DRUGS (2)
  1. PROPECIA [Suspect]
     Indication: ANDROGENETIC ALOPECIA
     Route: 048
     Dates: start: 20100210, end: 20100309
  2. VITAMINS (UNSPECIFIED) [Concomitant]
     Indication: VITAMIN SUPPLEMENTATION
     Route: 048
     Dates: start: 20100126, end: 20100220

REACTIONS (1)
  - DIABETES MELLITUS [None]
